FAERS Safety Report 7477693-8 (Version None)
Quarter: 2011Q2

REPORT INFORMATION
  Report Type: 
  Country: None (occurrence: None)
  Receive Date: 20110513
  Receipt Date: 20110406
  Transmission Date: 20111010
  Serious: Yes (Hospitalization)
  Sender: FDA-Public Use
  Company Number: US-BAYER-201035995NA

PATIENT
  Age: 45 Year
  Sex: Female
  Weight: 79.365 kg

DRUGS (6)
  1. LEXAPRO [Concomitant]
     Dosage: 10 MG, QD
  2. NAPROXEN [Concomitant]
     Dosage: UNK
     Dates: start: 20020309
  3. NEURONTIN [Concomitant]
     Dosage: 100 MG, QD
  4. CYPROHEPTADINE HCL [Concomitant]
     Indication: RHINITIS ALLERGIC
     Dosage: 4 MG, UNK
     Dates: start: 20051218, end: 20071007
  5. YAZ [Suspect]
     Indication: PRODUCT USED FOR UNKNOWN INDICATION
     Route: 048
     Dates: start: 20070101, end: 20070826
  6. MULTI-VITAMIN [Concomitant]

REACTIONS (1)
  - PULMONARY EMBOLISM [None]
